FAERS Safety Report 17999437 (Version 8)
Quarter: 2022Q3

REPORT INFORMATION
  Report Type: Report from Study
  Country: FR (occurrence: FR)
  Receive Date: 20200709
  Receipt Date: 20220913
  Transmission Date: 20221027
  Serious: Yes (Hospitalization)
  Sender: FDA-Public Use
  Company Number: NVSC2020FR192148

PATIENT
  Age: 66 Year
  Sex: Female
  Weight: 80 kg

DRUGS (9)
  1. NAPORAFENIB [Suspect]
     Active Substance: NAPORAFENIB
     Indication: Malignant melanoma
     Dosage: 400 MG, BID
     Route: 048
     Dates: start: 20200317
  2. TRAMETINIB [Suspect]
     Active Substance: TRAMETINIB
     Indication: Malignant melanoma
     Dosage: 0.5 MG, QD
     Route: 048
     Dates: start: 20200317
  3. AMLODIPINE [Concomitant]
     Active Substance: AMLODIPINE BESYLATE
     Indication: Bronchitis chronic
     Dosage: 5 MG, QD
     Route: 048
     Dates: start: 1989
  4. FAMOTIDINE [Concomitant]
     Active Substance: FAMOTIDINE
     Indication: Dyspepsia
     Dosage: 20 MG, QD
     Route: 048
     Dates: start: 20200312
  5. HYDROCORTISONE [Concomitant]
     Active Substance: HYDROCORTISONE
     Indication: Adrenal insufficiency
     Dosage: 30 MG, QD
     Route: 048
     Dates: start: 201909
  6. INNOHEP [Concomitant]
     Active Substance: TINZAPARIN SODIUM
     Indication: Thrombosis
     Dosage: 0.9 ML, QD
     Route: 003
     Dates: start: 20191009
  7. ALDOMET [Concomitant]
     Active Substance: METHYLDOPA
     Indication: Hypertension
     Dosage: 500 MG, QD
     Route: 048
     Dates: start: 1989
  8. SKENAN [Concomitant]
     Active Substance: MORPHINE SULFATE
     Indication: Musculoskeletal chest pain
     Dosage: 60 MG, QD
     Route: 048
     Dates: start: 20200326
  9. PREGABALIN [Concomitant]
     Active Substance: PREGABALIN
     Indication: Osteoarthritis
     Dosage: 200 MG, QD
     Route: 048
     Dates: start: 2015

REACTIONS (1)
  - General physical health deterioration [Not Recovered/Not Resolved]

NARRATIVE: CASE EVENT DATE: 20200703
